FAERS Safety Report 5526969-X (Version None)
Quarter: 2007Q4

REPORT INFORMATION
  Report Type: 
  Country: None (occurrence: None)
  Receive Date: 20071127
  Receipt Date: 20071123
  Transmission Date: 20080405
  Serious: Yes (Death, Hospitalization, Other)
  Sender: FDA-Public Use
  Company Number: DE-ABBOTT-07P-062-0425578-00

PATIENT
  Sex: Male

DRUGS (3)
  1. HUMIRA [Suspect]
     Indication: RHEUMATOID ARTHRITIS
     Route: 058
     Dates: start: 20060401, end: 20060601
  2. INFLIXIMAB [Suspect]
     Indication: RHEUMATOID ARTHRITIS
     Dates: start: 20060601, end: 20061016
  3. RITUXIMAB [Concomitant]
     Indication: RHEUMATOID ARTHRITIS
     Dates: start: 20061130, end: 20061214

REACTIONS (27)
  - ATRIAL FIBRILLATION [None]
  - BORDETELLA INFECTION [None]
  - CONDITION AGGRAVATED [None]
  - CRITICAL ILLNESS POLYNEUROPATHY [None]
  - DYSPHAGIA [None]
  - DYSPHONIA [None]
  - GAMMA-GLUTAMYLTRANSFERASE INCREASED [None]
  - HORNER'S SYNDROME [None]
  - HYPERTENSION [None]
  - INFLAMMATION [None]
  - KNEE ARTHROPLASTY [None]
  - KNEE DEFORMITY [None]
  - LABORATORY TEST ABNORMAL [None]
  - NEUROBORRELIOSIS [None]
  - OSTEOARTHRITIS [None]
  - OSTEOPOROSIS [None]
  - PERICARDIAL EFFUSION [None]
  - PERTUSSIS [None]
  - PLEURAL EFFUSION [None]
  - PNEUMONIA [None]
  - RECTAL ULCER [None]
  - RESPIRATION ABNORMAL [None]
  - RESPIRATORY FAILURE [None]
  - RHEUMATOID ARTHRITIS [None]
  - SEPSIS [None]
  - THORACIC CAVITY DRAINAGE [None]
  - TYPE 1 DIABETES MELLITUS [None]
